FAERS Safety Report 7621042-9 (Version None)
Quarter: 2011Q3

REPORT INFORMATION
  Report Type: 
  Country: None (occurrence: None)
  Receive Date: 20110719
  Receipt Date: 20100824
  Transmission Date: 20111222
  Serious: No
  Sender: FDA-Public Use
  Company Number: US-KINGPHARMUSA00001-K201001075

PATIENT
  Sex: Female

DRUGS (2)
  1. TRAMADOL HCL [Concomitant]
  2. LEVOXYL [Suspect]
     Indication: HYPOTHYROIDISM
     Dosage: 300 MCG, QD
     Route: 048
     Dates: start: 20100813

REACTIONS (1)
  - ORAL DISCOMFORT [None]
